FAERS Safety Report 16310346 (Version 8)
Quarter: 2020Q3

REPORT INFORMATION
  Report Type: Report from Study
  Country: US (occurrence: US)
  Receive Date: 20190514
  Receipt Date: 20200721
  Transmission Date: 20201102
  Serious: Yes (Hospitalization, Other)
  Sender: FDA-Public Use
  Company Number: US-ACTELION-A-US2019-190169

PATIENT
  Age: 58 Year
  Sex: Female

DRUGS (3)
  1. UPTRAVI [Suspect]
     Active Substance: SELEXIPAG
     Indication: PULMONARY ARTERIAL HYPERTENSION
     Dosage: 1000 MCG, QD
     Route: 048
     Dates: start: 20180424
  2. SILDENAFIL. [Concomitant]
     Active Substance: SILDENAFIL
  3. OPSUMIT [Suspect]
     Active Substance: MACITENTAN
     Indication: PULMONARY ARTERIAL HYPERTENSION
     Dosage: 10 MG, QD
     Route: 048
     Dates: start: 20170821

REACTIONS (8)
  - Subarachnoid haemorrhage [Unknown]
  - Cerebrovascular accident [Unknown]
  - Haemorrhage intracranial [Unknown]
  - Hospitalisation [Unknown]
  - Ammonia increased [Not Recovered/Not Resolved]
  - Diarrhoea [Not Recovered/Not Resolved]
  - Hepatocellular carcinoma [Unknown]
  - Chemotherapy [Not Recovered/Not Resolved]

NARRATIVE: CASE EVENT DATE: 201903
